FAERS Safety Report 19279643 (Version 1)
Quarter: 2021Q2

REPORT INFORMATION
  Report Type: Report from Study
  Country: GB (occurrence: GB)
  Receive Date: 20210520
  Receipt Date: 20210520
  Transmission Date: 20210717
  Serious: Yes (Other)
  Sender: FDA-Public Use
  Company Number: GB-SAMSUNG BIOEPIS-SB-2021-09787

PATIENT
  Sex: Female

DRUGS (3)
  1. IMRALDI [Suspect]
     Active Substance: ADALIMUMAB
     Dosage: FROM WEEK FOUR
     Route: 058
  2. IMRALDI [Suspect]
     Active Substance: ADALIMUMAB
     Dosage: WEEK TWO
     Route: 058
  3. IMRALDI [Suspect]
     Active Substance: ADALIMUMAB
     Indication: COLITIS ULCERATIVE
     Dosage: WEEK ZERO
     Route: 058
     Dates: start: 20210401

REACTIONS (17)
  - Balance disorder [Unknown]
  - Nausea [Unknown]
  - Headache [Unknown]
  - Fatigue [Unknown]
  - Ill-defined disorder [Unknown]
  - Crohn^s disease [Unknown]
  - Muscle twitching [Unknown]
  - Insomnia [Unknown]
  - Colitis ulcerative [Unknown]
  - Malaise [Unknown]
  - Abdominal pain upper [Unknown]
  - Back pain [Unknown]
  - Depressed mood [Unknown]
  - Irritability [Unknown]
  - Pain [Unknown]
  - Tremor [Unknown]
  - Crying [Unknown]
